FAERS Safety Report 14576330 (Version 1)
Quarter: 2018Q1

REPORT INFORMATION
  Report Type: Report from Study
  Country: US (occurrence: US)
  Receive Date: 20180227
  Receipt Date: 20180227
  Transmission Date: 20180509
  Serious: No
  Sender: FDA-Public Use
  Company Number: US-AMGEN-USASP2018024974

PATIENT
  Age: 31 Year
  Sex: Female

DRUGS (1)
  1. ENBREL [Suspect]
     Active Substance: ETANERCEPT
     Indication: ANKYLOSING SPONDYLITIS
     Dosage: 25 MG, 2 TIMES/WK
     Route: 065
     Dates: start: 201802

REACTIONS (6)
  - Blister [Unknown]
  - Pruritus [Unknown]
  - Erythema [Unknown]
  - Nausea [Recovered/Resolved]
  - Arthralgia [Unknown]
  - Macule [Unknown]

NARRATIVE: CASE EVENT DATE: 201802
